FAERS Safety Report 8387429-4 (Version None)
Quarter: 2012Q2

REPORT INFORMATION
  Report Type: 
  Country: None (occurrence: None)
  Receive Date: 20120525
  Receipt Date: 20120517
  Transmission Date: 20120825
  Serious: Yes (Hospitalization)
  Sender: FDA-Public Use
  Company Number: JP-NOVOPROD-349450

PATIENT
  Age: 56 Year
  Sex: Female
  Weight: 46 kg

DRUGS (9)
  1. NOVORAPID 30 MIX CHU PENFILL [Suspect]
     Indication: DIABETES MELLITUS
     Dosage: 30 U, QD
     Route: 058
     Dates: start: 20090101, end: 20110601
  2. INSULIN [Concomitant]
     Dosage: UNK
     Route: 058
     Dates: start: 20090101
  3. ADALAT CC [Concomitant]
     Dosage: 60 MG, QD
     Route: 048
     Dates: start: 20090101
  4. INHIBACE                           /00845401/ [Concomitant]
     Dosage: 1 MG, QD
     Route: 048
  5. APLACE [Concomitant]
     Dosage: 100 MG, QD
     Route: 048
  6. ASPIRIN [Concomitant]
     Dosage: 200 MG, QD
     Route: 048
  7. OLMESARTAN MEDOXOMIL [Concomitant]
     Dosage: 40 MG, QD
     Route: 048
  8. PENFILL 30R CHU [Suspect]
     Indication: DIABETES MELLITUS
     Dosage: UNKNOWN
     Route: 058
     Dates: start: 20030101, end: 20090101
  9. TICLOPIDINE HCL [Concomitant]
     Dosage: 200 MG, QD
     Route: 048

REACTIONS (2)
  - ANTI-INSULIN ANTIBODY INCREASED [None]
  - DIABETES MELLITUS INADEQUATE CONTROL [None]
